FAERS Safety Report 15138105 (Version 2)
Quarter: 2018Q3

REPORT INFORMATION
  Report Type: Spontaneous
  Country: GB (occurrence: GB)
  Receive Date: 20180713
  Receipt Date: 20180824
  Transmission Date: 20181010
  Serious: Yes (Disabling, Other)
  Sender: FDA-Public Use
  Company Number: GB-CONCORDIA PHARMACEUTICALS INC.-E2B_00013600

PATIENT
  Age: 60 Year
  Sex: Female
  Weight: 60.32 kg

DRUGS (13)
  1. CO?AMOXICLAV [Suspect]
     Active Substance: AMOXICILLIN\CLAVULANATE POTASSIUM
     Indication: LOWER RESPIRATORY TRACT INFECTION
     Dosage: 500/125MG
     Route: 048
     Dates: start: 20180213, end: 20180218
  2. VITAMIN D [Concomitant]
     Active Substance: CHOLECALCIFEROL
  3. MASTIC [Concomitant]
  4. PREDNISOLONE. [Suspect]
     Active Substance: PREDNISOLONE
     Indication: LOWER RESPIRATORY TRACT INFECTION
     Route: 048
     Dates: start: 20180213, end: 20180218
  5. COD?LIVER OIL [Concomitant]
     Active Substance: COD LIVER OIL
  6. MULTIVITAMIN [Concomitant]
     Active Substance: VITAMINS
  7. CLARITHROMYCIN. [Suspect]
     Active Substance: CLARITHROMYCIN
     Indication: LOWER RESPIRATORY TRACT INFECTION
     Route: 048
     Dates: start: 20180213, end: 20180218
  8. AMOXYCILLIN [Suspect]
     Active Substance: AMOXICILLIN
     Dosage: FOR 1 WEEK
     Dates: start: 201802
  9. PROBIOTIC [Concomitant]
     Active Substance: PROBIOTICS NOS
  10. MAGNESIUM [Concomitant]
     Active Substance: MAGNESIUM
  11. CITALOPRAM [Concomitant]
     Active Substance: CITALOPRAM HYDROBROMIDE
  12. SYMBICORT [Concomitant]
     Active Substance: BUDESONIDE\FORMOTEROL FUMARATE DIHYDRATE
     Indication: ASTHMA
     Route: 055
  13. VITAMIN A [Concomitant]
     Active Substance: VITAMIN A

REACTIONS (7)
  - Dysphagia [Not Recovered/Not Resolved]
  - Anxiety [Unknown]
  - Depression [Unknown]
  - Abnormal loss of weight [Unknown]
  - Asthenia [Unknown]
  - Fatigue [Unknown]
  - Sleep disorder [Unknown]

NARRATIVE: CASE EVENT DATE: 201802
